FAERS Safety Report 11759229 (Version 1)
Quarter: 2015Q4

REPORT INFORMATION
  Report Type: Spontaneous
  Country: US (occurrence: US)
  Receive Date: 20151120
  Receipt Date: 20151120
  Transmission Date: 20160304
  Serious: No
  Sender: FDA-Public Use
  Company Number: US-JNJFOC-20151000471

PATIENT
  Age: 77 Year
  Sex: Female
  Weight: 59.88 kg

DRUGS (10)
  1. MENS ROGAINE EXTRA STRENGTH [Suspect]
     Active Substance: MINOXIDIL
     Indication: ALOPECIA
     Dosage: HALF OF A CAPFUL
     Route: 061
     Dates: start: 201501
  2. GYMNEMA SYLVESTRE [Concomitant]
     Indication: BLOOD GLUCOSE ABNORMAL
     Route: 065
  3. HERBAL NOS [Concomitant]
     Active Substance: HERBALS
     Indication: HAIR DISORDER
     Route: 065
  4. HERBAL NOS [Concomitant]
     Active Substance: HERBALS
     Indication: ALOPECIA
     Route: 065
  5. HERBAL NOS [Concomitant]
     Active Substance: HERBALS
     Indication: NAIL DISORDER
     Route: 065
  6. MENS ROGAINE EXTRA STRENGTH [Suspect]
     Active Substance: MINOXIDIL
     Route: 061
  7. HERBAL NOS [Concomitant]
     Active Substance: HERBALS
     Indication: SKIN DISORDER
     Route: 065
  8. LOVASTATIN. [Concomitant]
     Active Substance: LOVASTATIN
     Indication: BLOOD CHOLESTEROL INCREASED
     Route: 065
  9. ASPIRIN. [Concomitant]
     Active Substance: ASPIRIN
     Indication: DIABETES MELLITUS
     Dosage: HALF A TAB
     Route: 065
  10. LORAZEPAM. [Concomitant]
     Active Substance: LORAZEPAM
     Indication: ANXIETY
     Dosage: AT NIGHT
     Route: 065

REACTIONS (5)
  - Drug ineffective [Unknown]
  - Wrong patient received medication [Not Recovered/Not Resolved]
  - Hair growth abnormal [Not Recovered/Not Resolved]
  - Wrong technique in product usage process [Not Recovered/Not Resolved]
  - Product formulation issue [Unknown]

NARRATIVE: CASE EVENT DATE: 201501
